FAERS Safety Report 9919956 (Version 1)
Quarter: 2014Q1

REPORT INFORMATION
  Report Type: Spontaneous
  Country: JP (occurrence: JP)
  Receive Date: 20140224
  Receipt Date: 20140224
  Transmission Date: 20141002
  Serious: Yes (Hospitalization, Other)
  Sender: FDA-Public Use
  Company Number: JP-GILEAD-2014-0095010

PATIENT
  Age: 71 Year
  Sex: Female
  Weight: 45 kg

DRUGS (11)
  1. AMBRISENTAN [Suspect]
     Indication: PULMONARY HYPERTENSION
     Dosage: 2.5MG PER DAY
     Route: 048
     Dates: start: 20131211, end: 20131219
  2. AMBRISENTAN [Suspect]
     Indication: POLYMYOSITIS
  3. SILDENAFIL [Concomitant]
  4. BERAPROST SODIUM [Concomitant]
  5. LIPITOR [Concomitant]
     Route: 048
  6. PREDNISOLONE [Concomitant]
     Route: 065
  7. REVATIO [Concomitant]
     Route: 048
  8. EDIROL [Concomitant]
     Route: 048
  9. NEORAL [Concomitant]
     Route: 048
  10. GASTER                             /00706001/ [Concomitant]
     Route: 048
  11. CARELOAD [Concomitant]
     Route: 048

REACTIONS (6)
  - Interstitial lung disease [Recovered/Resolved]
  - Flushing [Recovered/Resolved]
  - Face oedema [Recovered/Resolved]
  - Dyspnoea [Unknown]
  - Eyelid oedema [Unknown]
  - Weight increased [Unknown]
